FAERS Safety Report 5636035-0 (Version None)
Quarter: 2008Q1

REPORT INFORMATION
  Report Type: 
  Country: None (occurrence: None)
  Receive Date: 20080220
  Receipt Date: 20080220
  Transmission Date: 20080703
  Serious: No
  Sender: FDA-Public Use
  Company Number: None

PATIENT
  Age: 72 Year
  Sex: Male
  Weight: 78.4723 kg

DRUGS (1)
  1. LEVITRA [Suspect]
     Indication: ERECTILE DYSFUNCTION
     Dosage: ONE TABLET 1 OR 2 WEEK PO
     Route: 048
     Dates: start: 20061101, end: 20061201

REACTIONS (2)
  - DEAFNESS [None]
  - VERTIGO [None]
